FAERS Safety Report 17086951 (Version 3)
Quarter: 2025Q2

REPORT INFORMATION
  Report Type: Report from Study
  Country: US (occurrence: US)
  Receive Date: 20191128
  Receipt Date: 20250619
  Transmission Date: 20250717
  Serious: Yes (Life-Threatening)
  Sender: TAKEDA
  Company Number: US-SHIRE-US201934518

PATIENT
  Sex: Female

DRUGS (11)
  1. PARATHYROID HORMONE [Suspect]
     Active Substance: PARATHYROID HORMONE
     Indication: Hypoparathyroidism
  2. PARATHYROID HORMONE [Suspect]
     Active Substance: PARATHYROID HORMONE
  3. PARATHYROID HORMONE [Suspect]
     Active Substance: PARATHYROID HORMONE
     Dosage: 75 MICROGRAM, QD
     Dates: start: 20170811
  4. CALCITRIOL [Concomitant]
     Active Substance: CALCITRIOL
     Indication: Hypocalcaemia
  5. CALCIUM [Concomitant]
     Active Substance: CALCIUM
     Indication: Chvostek^s sign
  6. CALCIUM [Concomitant]
     Active Substance: CALCIUM
     Indication: Tetany
  7. MAGNESIUM [Concomitant]
     Active Substance: MAGNESIUM
     Indication: Chvostek^s sign
  8. MAGNESIUM [Concomitant]
     Active Substance: MAGNESIUM
     Indication: Tetany
  9. POTASSIUM [Concomitant]
     Active Substance: POTASSIUM
     Indication: Chvostek^s sign
  10. POTASSIUM [Concomitant]
     Active Substance: POTASSIUM
     Indication: Tetany
  11. FORTEO [Concomitant]
     Active Substance: TERIPARATIDE
     Indication: Product used for unknown indication

REACTIONS (3)
  - Blood calcium abnormal [Unknown]
  - Hypercalcaemia [Unknown]
  - Recalled product [Unknown]
